FAERS Safety Report 19218247 (Version 1)
Quarter: 2021Q2

REPORT INFORMATION
  Report Type: Spontaneous
  Country: US (occurrence: US)
  Receive Date: 20210505
  Receipt Date: 20210505
  Transmission Date: 20210717
  Serious: Yes (Hospitalization)
  Sender: FDA-Public Use
  Company Number: US-UNICHEM PHARMACEUTICALS (USA) INC-UCM202104-000385

PATIENT
  Age: 12 Year
  Sex: Female

DRUGS (1)
  1. AMLODIPINE [Suspect]
     Active Substance: AMLODIPINE BESYLATE
     Indication: INTENTIONAL OVERDOSE
     Dosage: UP TO 900 MG

REACTIONS (8)
  - Mental status changes [Recovering/Resolving]
  - Overdose [Unknown]
  - Respiratory acidosis [Recovering/Resolving]
  - Hypotension [Recovering/Resolving]
  - Metabolic acidosis [Recovering/Resolving]
  - Suicidal ideation [Unknown]
  - Generalised tonic-clonic seizure [Recovering/Resolving]
  - Acute respiratory distress syndrome [Recovering/Resolving]
